FAERS Safety Report 7951842-7 (Version None)
Quarter: 2011Q4

REPORT INFORMATION
  Report Type: 
  Country: None (occurrence: None)
  Receive Date: 20111130
  Receipt Date: 20111130
  Transmission Date: 20120403
  Serious: No
  Sender: FDA-Public Use
  Company Number: None

PATIENT
  Sex: Female

DRUGS (1)
  1. LATANOPROST [Suspect]
     Indication: GLAUCOMA
     Dosage: 1 DROP IN EACH EYE AT BEDTIME
     Dates: start: 20111112, end: 20111123

REACTIONS (2)
  - INCORRECT DOSE ADMINISTERED BY DEVICE [None]
  - MEDICAL DEVICE COMPLICATION [None]
